FAERS Safety Report 7671075-1 (Version None)
Quarter: 2011Q3

REPORT INFORMATION
  Report Type: 
  Country: None (occurrence: None)
  Receive Date: 20110803
  Receipt Date: 20110726
  Transmission Date: 20111222
  Serious: Yes (Other)
  Sender: FDA-Public Use
  Company Number: 1000022484

PATIENT
  Age: 33 Year
  Sex: Female

DRUGS (11)
  1. LEXAPRO [Suspect]
     Indication: DEPRESSION
     Dosage: 10 MG (10 MG, 1 IN 1 D), ORAL; 10 MG BID (10 MG, 2 IN 1 D), ORAL
     Route: 048
     Dates: start: 20090101
  2. LEXAPRO [Suspect]
     Indication: ANXIETY
     Dosage: 10 MG (10 MG, 1 IN 1 D), ORAL; 10 MG BID (10 MG, 2 IN 1 D), ORAL
     Route: 048
     Dates: start: 20090101
  3. LEXAPRO [Suspect]
     Indication: PREMENSTRUAL SYNDROME
     Dosage: 10 MG (10 MG, 1 IN 1 D), ORAL; 10 MG BID (10 MG, 2 IN 1 D), ORAL
     Route: 048
     Dates: start: 20090101
  4. LEXAPRO [Suspect]
     Indication: DEPRESSION
     Dosage: 10 MG (10 MG, 1 IN 1 D), ORAL; 10 MG BID (10 MG, 2 IN 1 D), ORAL
     Route: 048
     Dates: start: 20090101, end: 20090101
  5. LEXAPRO [Suspect]
     Indication: ANXIETY
     Dosage: 10 MG (10 MG, 1 IN 1 D), ORAL; 10 MG BID (10 MG, 2 IN 1 D), ORAL
     Route: 048
     Dates: start: 20090101, end: 20090101
  6. LEXAPRO [Suspect]
     Indication: PREMENSTRUAL SYNDROME
     Dosage: 10 MG (10 MG, 1 IN 1 D), ORAL; 10 MG BID (10 MG, 2 IN 1 D), ORAL
     Route: 048
     Dates: start: 20090101, end: 20090101
  7. LORATADINE [Concomitant]
  8. METHOCARBAMOL [Concomitant]
  9. HYDROCODONE/ACETAMINOPHEN (HYDROCODONE, ACETAMINOPHEN) [Concomitant]
  10. ZANAFLEX [Concomitant]
  11. MOTRIN [Concomitant]

REACTIONS (60)
  - CONDITION AGGRAVATED [None]
  - MUSCLE SPASMS [None]
  - MIGRAINE [None]
  - FEELING ABNORMAL [None]
  - EXTRASYSTOLES [None]
  - HYPOPNOEA [None]
  - MUSCULOSKELETAL STIFFNESS [None]
  - DYSPEPSIA [None]
  - PAIN [None]
  - BRUXISM [None]
  - INSOMNIA [None]
  - SWELLING FACE [None]
  - HYPERREFLEXIA [None]
  - COORDINATION ABNORMAL [None]
  - DRY MOUTH [None]
  - COMMUNICATION DISORDER [None]
  - ABNORMAL BEHAVIOUR [None]
  - AMNESIA [None]
  - CRYING [None]
  - AGGRESSION [None]
  - SUICIDAL IDEATION [None]
  - NEGATIVE THOUGHTS [None]
  - DISTURBANCE IN ATTENTION [None]
  - GAIT DISTURBANCE [None]
  - SPEECH DISORDER [None]
  - ABDOMINAL DISCOMFORT [None]
  - PSYCHOMOTOR HYPERACTIVITY [None]
  - FEELING COLD [None]
  - DYSPNOEA [None]
  - AGITATION [None]
  - PREMENSTRUAL SYNDROME [None]
  - ABDOMINAL PAIN UPPER [None]
  - MOOD ALTERED [None]
  - ANXIETY [None]
  - TREMOR [None]
  - IMPULSIVE BEHAVIOUR [None]
  - IRRITABILITY [None]
  - COLD SWEAT [None]
  - HYPERHIDROSIS [None]
  - DRY SKIN [None]
  - CONFUSIONAL STATE [None]
  - SOMNOLENCE [None]
  - ANORGASMIA [None]
  - NAUSEA [None]
  - DYSLEXIA [None]
  - DEPRESSION [None]
  - PHARYNGEAL OEDEMA [None]
  - ASTHENIA [None]
  - HALLUCINATION, AUDITORY [None]
  - PANIC ATTACK [None]
  - RESTLESSNESS [None]
  - NIGHTMARE [None]
  - SKIN DISORDER [None]
  - MENSTRUAL DISORDER [None]
  - NERVOUSNESS [None]
  - WEIGHT INCREASED [None]
  - NEURALGIA [None]
  - DECREASED APPETITE [None]
  - FATIGUE [None]
  - UNEVALUABLE EVENT [None]
